FAERS Safety Report 20844704 (Version 1)
Quarter: 2022Q2

REPORT INFORMATION
  Report Type: Spontaneous
  Country: FR (occurrence: FR)
  Receive Date: 20220518
  Receipt Date: 20220518
  Transmission Date: 20220721
  Serious: Yes (Hospitalization)
  Sender: FDA-Public Use
  Company Number: None

PATIENT
  Age: 7 Year
  Sex: Male
  Weight: 27 kg

DRUGS (5)
  1. ACYCLOVIR [Suspect]
     Active Substance: ACYCLOVIR
     Indication: Herpes virus infection
     Dosage: 500 MILLIGRAM, Q8H (500 MG/8H)
     Route: 042
     Dates: start: 20220414, end: 20220419
  2. DEXAMETHASONE [Concomitant]
     Active Substance: DEXAMETHASONE
     Dosage: UNK
     Dates: start: 20220414, end: 20220417
  3. CEFOTAXIME [Concomitant]
     Active Substance: CEFOTAXIME SODIUM
     Dosage: UNK
     Dates: start: 20220414, end: 20220417
  4. PANTOPRAZOLE [Concomitant]
     Active Substance: PANTOPRAZOLE
     Dosage: UNK
     Dates: start: 20220414, end: 20220418
  5. CLONAZEPAM [Concomitant]
     Active Substance: CLONAZEPAM
     Indication: Generalised tonic-clonic seizure
     Dosage: UNK
     Dates: start: 20220414, end: 20220422

REACTIONS (1)
  - Acute kidney injury [Recovered/Resolved]

NARRATIVE: CASE EVENT DATE: 20220420
